FAERS Safety Report 22378269 (Version 2)
Quarter: 2023Q2

REPORT INFORMATION
  Report Type: Spontaneous
  Country: GB (occurrence: GB)
  Receive Date: 20230529
  Receipt Date: 20230607
  Transmission Date: 20230721
  Serious: Yes (Death, Other)
  Sender: FDA-Public Use
  Company Number: None

PATIENT
  Age: 39 Year
  Sex: Male

DRUGS (4)
  1. GABAPENTIN [Suspect]
     Active Substance: GABAPENTIN
     Indication: Product used for unknown indication
     Dosage: 900 MG/D
     Route: 065
  2. METHADONE HYDROCHLORIDE [Suspect]
     Active Substance: METHADONE HYDROCHLORIDE
     Indication: Pain
     Dosage: 110 MG/D (STABLE)
     Route: 065
  3. CHLORDIAZEPOXIDE [Suspect]
     Active Substance: CHLORDIAZEPOXIDE
     Indication: Product used for unknown indication
     Dosage: UNK
     Route: 065
  4. MIRTAZAPINE [Suspect]
     Active Substance: MIRTAZAPINE
     Indication: Product used for unknown indication
     Dosage: 30 MG/D
     Route: 065

REACTIONS (5)
  - Depressed level of consciousness [Fatal]
  - Respiratory arrest [Fatal]
  - Toxicity to various agents [Fatal]
  - Snoring [Fatal]
  - Somnolence [Fatal]
